FAERS Safety Report 19007150 (Version 1)
Quarter: 2021Q1

REPORT INFORMATION
  Report Type: Spontaneous
  Country: US (occurrence: US)
  Receive Date: 20210312
  Receipt Date: 20210312
  Transmission Date: 20210420
  Serious: Yes (Hospitalization)
  Sender: FDA-Public Use
  Company Number: None

PATIENT
  Sex: Male

DRUGS (2)
  1. XOLAIR [Suspect]
     Active Substance: OMALIZUMAB
     Indication: CYSTIC FIBROSIS LUNG
     Route: 058
     Dates: start: 20210305
  2. VORICONAZOLE. [Suspect]
     Active Substance: VORICONAZOLE

REACTIONS (2)
  - Cystic fibrosis lung [None]
  - Condition aggravated [None]
